FAERS Safety Report 17236250 (Version 1)
Quarter: 2020Q1

REPORT INFORMATION
  Report Type: Report from Study
  Country: IT (occurrence: IT)
  Receive Date: 20200106
  Receipt Date: 20200106
  Transmission Date: 20200409
  Serious: Yes (Hospitalization)
  Sender: FDA-Public Use
  Company Number: IT-TEVA-2019-IT-1161880

PATIENT
  Age: 77 Year
  Sex: Female

DRUGS (5)
  1. HALOPERIDOL. [Concomitant]
     Active Substance: HALOPERIDOL
  2. RAMIPRIL. [Concomitant]
     Active Substance: RAMIPRIL
  3. ROPINIROLE HYDROCHLORIDE. [Suspect]
     Active Substance: ROPINIROLE HYDROCHLORIDE
     Indication: PARKINSONISM
     Dosage: 1 DOSAGE FORMS 1 DAYS
     Route: 048
     Dates: end: 20191008
  4. DONEPEZIL. [Concomitant]
     Active Substance: DONEPEZIL
  5. LEVODOPA [Suspect]
     Active Substance: LEVODOPA
     Indication: PARKINSONISM
     Dosage: 1 DOSAGE FORMS 1 DAYS
     Route: 048
     Dates: end: 20191008

REACTIONS (3)
  - Pain in extremity [Recovering/Resolving]
  - Weight decreased [Recovering/Resolving]
  - Asthenia [Recovering/Resolving]

NARRATIVE: CASE EVENT DATE: 20191008
